FAERS Safety Report 15757857 (Version 8)
Quarter: 2019Q4

REPORT INFORMATION
  Report Type: Report from Study
  Country: CA (occurrence: CA)
  Receive Date: 20181225
  Receipt Date: 20191227
  Transmission Date: 20200122
  Serious: Yes (Other)
  Sender: FDA-Public Use
  Company Number: CA-ROCHE-2232505

PATIENT
  Age: 72 Year
  Sex: Female

DRUGS (18)
  1. PANTOLOC [PANTOPRAZOLE] [Concomitant]
     Active Substance: PANTOPRAZOLE SODIUM
  2. HYDROXYCHLOROQUINE [Concomitant]
     Active Substance: HYDROXYCHLOROQUINE
  3. EURO FOLIC [Concomitant]
     Active Substance: FOLIC ACID
  4. RITUXAN [Suspect]
     Active Substance: RITUXIMAB
     Indication: RHEUMATOID ARTHRITIS
     Dosage: DAY 1,15;?PREVIOUS RITUXIMAB INFUSION: 05/JUN/2019.
     Route: 042
     Dates: start: 20181212
  5. SOLU-MEDROL [Concomitant]
     Active Substance: METHYLPREDNISOLONE SODIUM SUCCINATE
     Indication: PREMEDICATION
     Route: 042
     Dates: start: 20181212
  6. LORAZEPAM. [Concomitant]
     Active Substance: LORAZEPAM
  7. CITALOPRAM [Concomitant]
     Active Substance: CITALOPRAM HYDROBROMIDE
  8. METOPROLOL. [Concomitant]
     Active Substance: METOPROLOL
  9. TYLENOL [Concomitant]
     Active Substance: ACETAMINOPHEN
     Indication: PREMEDICATION
     Route: 048
     Dates: start: 20181212
  10. BENADRYL [Concomitant]
     Active Substance: DIPHENHYDRAMINE HYDROCHLORIDE
     Indication: PREMEDICATION
     Route: 048
     Dates: start: 20181212
  11. METHOTREXATE. [Concomitant]
     Active Substance: METHOTREXATE
  12. PRAVASTATIN. [Concomitant]
     Active Substance: PRAVASTATIN
  13. NOVO-GESIC [Concomitant]
     Active Substance: ACETAMINOPHEN
  14. CORTISONE [Concomitant]
     Active Substance: CORTISONE
     Dosage: FOR 2 MONTHS
     Route: 065
  15. PERINDOPRIL [Concomitant]
     Active Substance: PERINDOPRIL
     Indication: PRODUCT USED FOR UNKNOWN INDICATION
     Route: 065
  16. ALENDRONATE [Concomitant]
     Active Substance: ALENDRONATE SODIUM
  17. AMLODIPINE [Concomitant]
     Active Substance: AMLODIPINE BESYLATE
  18. NAPROXEN. [Concomitant]
     Active Substance: NAPROXEN
     Route: 065

REACTIONS (20)
  - Blood pressure systolic abnormal [Unknown]
  - Blood pressure increased [Unknown]
  - Dysgeusia [Recovered/Resolved]
  - Fatigue [Unknown]
  - Angina pectoris [Recovered/Resolved]
  - Cough [Unknown]
  - Unevaluable event [Not Recovered/Not Resolved]
  - Infusion related reaction [Unknown]
  - Cardiac failure [Unknown]
  - Blood pressure systolic increased [Unknown]
  - Sensory disturbance [Recovered/Resolved]
  - Fatigue [Unknown]
  - Anxiety [Not Recovered/Not Resolved]
  - Nervousness [Unknown]
  - Body temperature decreased [Unknown]
  - Oxygen saturation decreased [Unknown]
  - Myalgia [Unknown]
  - Mass [Not Recovered/Not Resolved]
  - Enteritis infectious [Unknown]
  - Arthralgia [Recovered/Resolved]

NARRATIVE: CASE EVENT DATE: 20181212
